FAERS Safety Report 7968249-9 (Version None)
Quarter: 2011Q4

REPORT INFORMATION
  Report Type: 
  Country: None (occurrence: None)
  Receive Date: 20111209
  Receipt Date: 20111205
  Transmission Date: 20120403
  Serious: Yes (Death, Hospitalization, Other)
  Sender: FDA-Public Use
  Company Number: PHHY2011MX72809

PATIENT
  Age: 68 Year
  Sex: Male

DRUGS (1)
  1. EXFORGE HCT [Suspect]
     Indication: HYPERTENSION
     Dosage: 1 TABLET OF 160 MG VALSARTAN, 5 MG AMLODIPINE AND 12.5 MG OF HYDROCHLORTHIAZIDE, DAILY

REACTIONS (3)
  - OEDEMA DUE TO RENAL DISEASE [None]
  - BRAIN OEDEMA [None]
  - RENAL FAILURE [None]
